FAERS Safety Report 15931407 (Version 5)
Quarter: 2019Q2

REPORT INFORMATION
  Report Type: Spontaneous
  Country: US (occurrence: US)
  Receive Date: 20190207
  Receipt Date: 20190607
  Transmission Date: 20190711
  Serious: Yes (Other)
  Sender: FDA-Public Use
  Company Number: US-ROCHE-2261518

PATIENT
  Age: 78 Year
  Sex: Male
  Weight: 108.96 kg

DRUGS (5)
  1. LUCENTIS [Suspect]
     Active Substance: RANIBIZUMAB
     Indication: MACULAR DEGENERATION
     Route: 050
     Dates: start: 20170519, end: 20180206
  2. AVASTIN [Suspect]
     Active Substance: BEVACIZUMAB
     Indication: OFF LABEL USE
  3. LUCENTIS [Suspect]
     Active Substance: RANIBIZUMAB
     Indication: OFF LABEL USE
  4. AVASTIN [Suspect]
     Active Substance: BEVACIZUMAB
     Indication: MACULAR DEGENERATION
     Route: 050
     Dates: end: 201801
  5. VITAMIN D3 [Concomitant]
     Active Substance: CHOLECALCIFEROL
     Indication: OFF LABEL USE

REACTIONS (6)
  - Ocular hyperaemia [Unknown]
  - Transmission of an infectious agent via product [Unknown]
  - Intentional product use issue [Unknown]
  - Blindness [Not Recovered/Not Resolved]
  - Infection [Unknown]
  - Off label use [Unknown]

NARRATIVE: CASE EVENT DATE: 20180205
